FAERS Safety Report 16763346 (Version 1)
Quarter: 2019Q3

REPORT INFORMATION
  Report Type: Spontaneous
  Country: US (occurrence: US)
  Receive Date: 20190902
  Receipt Date: 20190902
  Transmission Date: 20191005
  Serious: No
  Sender: FDA-Public Use
  Company Number: US-TEVA-2019-US-1100976

PATIENT
  Sex: Female

DRUGS (1)
  1. ENOXAPARIN SODIUM INJECTION [Suspect]
     Active Substance: ENOXAPARIN SODIUM
     Dosage: DOSE STRENGTH:  150 MG/1 ML
     Route: 065

REACTIONS (3)
  - Injection site bruising [Unknown]
  - Abdominal pain upper [Unknown]
  - Injection site pain [Unknown]
